FAERS Safety Report 9310006 (Version 1)
Quarter: 2013Q2

REPORT INFORMATION
  Report Type: Spontaneous
  Country: US (occurrence: US)
  Receive Date: 20130527
  Receipt Date: 20130527
  Transmission Date: 20140414
  Serious: No
  Sender: FDA-Public Use
  Company Number: US-BIOGENIDEC-2013BI044794

PATIENT
  Age: 43 Year
  Sex: Female

DRUGS (6)
  1. AVONEX [Suspect]
     Indication: MULTIPLE SCLEROSIS
     Route: 030
     Dates: start: 20060630, end: 2013
  2. AVONEX [Suspect]
     Indication: MULTIPLE SCLEROSIS
     Route: 030
     Dates: start: 2013
  3. KEPPRA [Concomitant]
     Indication: CONVULSION PROPHYLAXIS
     Dates: start: 2007
  4. IBUPROFEN [Concomitant]
     Indication: BACK PAIN
  5. TYLENOL [Concomitant]
     Indication: BACK PAIN
  6. INHALER (NOS) [Concomitant]
     Indication: ASTHMA

REACTIONS (2)
  - Haemorrhage [Recovered/Resolved]
  - Anxiety [Recovered/Resolved]
